FAERS Safety Report 9073477 (Version 1)
Quarter: 2013Q1

REPORT INFORMATION
  Report Type: Spontaneous
  Country: US (occurrence: US)
  Receive Date: 20130129
  Receipt Date: 20130129
  Transmission Date: 20140127
  Serious: No
  Sender: FDA-Public Use
  Company Number: US-ABBOTT-12P-163-0918899-00

PATIENT
  Sex: Male
  Weight: 78.54 kg

DRUGS (5)
  1. HUMIRA 40 MG/0.8 ML PEN [Suspect]
     Indication: CROHN^S DISEASE
     Dates: start: 201010
  2. ACYCLOVIR [Suspect]
     Indication: APHTHOUS STOMATITIS
     Dates: start: 201202, end: 201202
  3. ORABASE [Suspect]
     Indication: APHTHOUS STOMATITIS
     Dates: start: 201202
  4. TRAMADOL [Concomitant]
     Indication: ARTHRALGIA
  5. VITAMINS [Concomitant]
     Indication: VITAMIN SUPPLEMENTATION

REACTIONS (5)
  - Aphthous stomatitis [Not Recovered/Not Resolved]
  - Dyspnoea [Recovered/Resolved]
  - Spinal osteoarthritis [Not Recovered/Not Resolved]
  - Nausea [Not Recovered/Not Resolved]
  - Abdominal pain upper [Not Recovered/Not Resolved]
